FAERS Safety Report 13257511 (Version 3)
Quarter: 2017Q2

REPORT INFORMATION
  Report Type: Spontaneous
  Country: US (occurrence: US)
  Receive Date: 20170221
  Receipt Date: 20170519
  Transmission Date: 20170830
  Serious: No
  Sender: FDA-Public Use
  Company Number: US-PFIZER INC-2017076869

PATIENT
  Age: 59 Year
  Sex: Female
  Weight: 75 kg

DRUGS (2)
  1. LEVOXYL [Suspect]
     Active Substance: LEVOTHYROXINE SODIUM
     Indication: HYPERTHYROIDISM
     Dosage: ONE DAY I TAKE 0.088 MG AND THE NEXT I TAKE 0.075 MG, ONE PILL A DAY IN THE MORNING AT 6 O^CLOCK
     Route: 048
     Dates: start: 201411, end: 20170216
  2. LEVOXYL [Suspect]
     Active Substance: LEVOTHYROXINE SODIUM
     Dosage: ONE DAY I TAKE 0.088 MG AND THE NEXT I TAKE 0.075 MG, ONE PILL A DAY IN THE MORNING AT 6 O^CLOCK
     Route: 048
     Dates: start: 201411, end: 20170216

REACTIONS (3)
  - Product use in unapproved indication [Unknown]
  - Pruritus [Recovering/Resolving]
  - Hypersensitivity [Unknown]

NARRATIVE: CASE EVENT DATE: 201702
